FAERS Safety Report 15503842 (Version 1)
Quarter: 2018Q4

REPORT INFORMATION
  Report Type: Spontaneous
  Country: US (occurrence: US)
  Receive Date: 20181009
  Receipt Date: 20181009
  Transmission Date: 20190205
  Serious: Yes (Other)
  Sender: FDA-Public Use
  Company Number: None

PATIENT
  Age: 6 Week
  Sex: Female
  Weight: 147.42 kg

DRUGS (2)
  1. VITAMIN B12 [Concomitant]
     Active Substance: CYANOCOBALAMIN
  2. KYLEENA [Suspect]
     Active Substance: LEVONORGESTREL
     Dates: start: 20180617, end: 20181008

REACTIONS (2)
  - Device expulsion [None]
  - Vulvovaginal injury [None]

NARRATIVE: CASE EVENT DATE: 20181008
